FAERS Safety Report 22735361 (Version 2)
Quarter: 2024Q2

REPORT INFORMATION
  Report Type: Spontaneous
  Country: DE (occurrence: DE)
  Receive Date: 20230721
  Receipt Date: 20240513
  Transmission Date: 20240715
  Serious: Yes (Hospitalization, Other)
  Sender: FDA-Public Use
  Company Number: DE-EMA-DD-20230630-3736665-073409

PATIENT
  Age: 68 Year
  Sex: Male
  Weight: 77 kg

DRUGS (9)
  1. ETOPOSIDE [Suspect]
     Active Substance: ETOPOSIDE
     Indication: Product used for unknown indication
     Dosage: 200 UNK
     Route: 065
     Dates: start: 20170320, end: 20170322
  2. BISOPROLOL [Concomitant]
     Active Substance: BISOPROLOL\BISOPROLOL FUMARATE
     Indication: Tachycardia
     Dosage: 5 MG, 2X/DAY
     Route: 048
     Dates: start: 20170424, end: 20170428
  3. CYTARABINE [Suspect]
     Active Substance: CYTARABINE
     Indication: Product used for unknown indication
     Dosage: 200 MG
     Route: 065
     Dates: start: 20170320, end: 20170326
  4. PANTOPRAZOLE SODIUM [Concomitant]
     Active Substance: PANTOPRAZOLE SODIUM
     Indication: Gastritis
     Dosage: 40 MG
     Route: 048
     Dates: start: 20170424, end: 20170502
  5. LENOGRASTIM [Concomitant]
     Active Substance: LENOGRASTIM
     Indication: Haematopoietic stem cell mobilisation
     Dosage: 34 MILL
     Route: 058
     Dates: start: 20170426, end: 20170429
  6. CITALOPRAM [Concomitant]
     Active Substance: CITALOPRAM\CITALOPRAM HYDROBROMIDE
     Indication: Depression
     Dosage: 20 UNK
     Route: 048
     Dates: start: 20170424, end: 20170502
  7. BROMAZEPAM [Concomitant]
     Active Substance: BROMAZEPAM
     Indication: Restlessness
     Dosage: TIME INTERVAL: AS NECESSARY: 6 MG, AS NEEDED
     Route: 048
     Dates: start: 20170424
  8. IDARUBICIN [Suspect]
     Active Substance: IDARUBICIN
     Indication: Product used for unknown indication
     Dosage: 24 MG
     Route: 065
     Dates: start: 20170320, end: 20170322
  9. BUTYLSCOPOLAMINE BROMIDE [Concomitant]
     Active Substance: BUTYLSCOPOLAMINE BROMIDE
     Indication: Muscle spasms
     Dosage: 2X1
     Route: 042
     Dates: start: 20170429, end: 20170502

REACTIONS (2)
  - Pneumonia [Recovered/Resolved]
  - Systemic inflammatory response syndrome [Recovered/Resolved]

NARRATIVE: CASE EVENT DATE: 20170424
